FAERS Safety Report 21258712 (Version 2)
Quarter: 2022Q3

REPORT INFORMATION
  Report Type: Spontaneous
  Country: RO (occurrence: RO)
  Receive Date: 20220826
  Receipt Date: 20220906
  Transmission Date: 20221027
  Serious: Yes (Death, Other)
  Sender: FDA-Public Use
  Company Number: RO-BRACCO-2022RO03242

PATIENT
  Age: 51 Year
  Sex: Female

DRUGS (2)
  1. IOPAMIRO [Suspect]
     Active Substance: IOPAMIDOL
     Indication: Computerised tomogram
     Dosage: 25 ML IN 1000 ML WATER
     Route: 048
     Dates: start: 20220808, end: 20220808
  2. IOPAMIRO [Suspect]
     Active Substance: IOPAMIDOL
     Dosage: 130 ML, SINGLE
     Route: 042
     Dates: start: 20220808, end: 20220808

REACTIONS (2)
  - Incorrect route of product administration [Unknown]
  - Anaphylactic shock [Fatal]

NARRATIVE: CASE EVENT DATE: 20220808
